FAERS Safety Report 5164708-5 (Version None)
Quarter: 2006Q4

REPORT INFORMATION
  Report Type: 
  Country: None (occurrence: None)
  Receive Date: 20061205
  Receipt Date: 20061127
  Transmission Date: 20070319
  Serious: Yes (Other)
  Sender: FDA-Public Use
  Company Number: NL-SANOFI-SYNTHELABO-A01200610357

PATIENT

DRUGS (2)
  1. CAPECITABINE [Concomitant]
     Dosage: UNK
  2. ELOXATIN [Suspect]
     Dosage: UNK
     Route: 042

REACTIONS (1)
  - ENCEPHALOPATHY [None]
